FAERS Safety Report 8261677-6 (Version None)
Quarter: 2012Q2

REPORT INFORMATION
  Report Type: 
  Country: None (occurrence: None)
  Receive Date: 20120405
  Receipt Date: 20120405
  Transmission Date: 20120825
  Serious: Yes (Other)
  Sender: FDA-Public Use
  Company Number: None

PATIENT
  Age: 57 Year
  Sex: Female
  Weight: 77.564 kg

DRUGS (1)
  1. LEVOTHROID [Suspect]
     Indication: HYPOTHYROIDISM
     Dosage: 1 TAB
     Route: 048
     Dates: start: 20120222, end: 20120403

REACTIONS (5)
  - PRODUCT SUBSTITUTION ISSUE [None]
  - BLOOD CHOLESTEROL INCREASED [None]
  - BRADYCARDIA [None]
  - THYROID FUNCTION TEST ABNORMAL [None]
  - LIVER FUNCTION TEST ABNORMAL [None]
